FAERS Safety Report 5825748-3 (Version None)
Quarter: 2008Q3

REPORT INFORMATION
  Report Type: 
  Country: None (occurrence: None)
  Receive Date: 20080729
  Receipt Date: 20080723
  Transmission Date: 20090109
  Serious: Yes (Hospitalization)
  Sender: FDA-Public Use
  Company Number: FR-MERCK-0807FRA00083

PATIENT
  Age: 88 Year
  Sex: Female

DRUGS (13)
  1. FOSPHENYTOIN SODIUM [Suspect]
     Indication: STATUS EPILEPTICUS
     Route: 048
     Dates: start: 20080429, end: 20080429
  2. FOSPHENYTOIN SODIUM [Suspect]
     Route: 048
     Dates: start: 20080429, end: 20080509
  3. NOROXIN [Suspect]
     Route: 048
     Dates: start: 20080509, end: 20080517
  4. PHENYTOIN [Suspect]
     Indication: STATUS EPILEPTICUS
     Route: 048
     Dates: start: 20080509, end: 20080517
  5. ATENOLOL [Concomitant]
     Route: 048
  6. VALPROATE SODIUM [Concomitant]
     Indication: STATUS EPILEPTICUS
     Route: 042
     Dates: start: 20080428, end: 20080428
  7. FUROSEMIDE [Concomitant]
     Route: 048
     Dates: start: 20060101, end: 20080428
  8. POTASSIUM CHLORIDE [Concomitant]
     Route: 048
     Dates: start: 20060101
  9. TIANEPTINE SODIUM [Concomitant]
     Route: 048
     Dates: start: 20060101
  10. ATORVASTATIN CALCIUM [Concomitant]
     Route: 048
     Dates: start: 20060101, end: 20080428
  11. NAFRONYL OXALATE [Concomitant]
     Route: 048
     Dates: start: 20060101, end: 20080428
  12. PANTOPRAZOLE SODIUM [Concomitant]
     Route: 048
     Dates: start: 20060101
  13. DOMPERIDONE [Concomitant]
     Route: 065
     Dates: start: 20060101

REACTIONS (2)
  - CHOLESTASIS [None]
  - CYTOLYTIC HEPATITIS [None]
